FAERS Safety Report 5926090-2 (Version None)
Quarter: 2008Q4

REPORT INFORMATION
  Report Type: 
  Country: None (occurrence: None)
  Receive Date: 20081021
  Receipt Date: 20081015
  Transmission Date: 20090506
  Serious: Yes (Other)
  Sender: FDA-Public Use
  Company Number: JP-MERCK-0810USA02974

PATIENT
  Sex: Female

DRUGS (2)
  1. FOSAMAX [Suspect]
     Indication: OSTEOPOROSIS
     Route: 048
     Dates: start: 20080601
  2. [THERAPY UNSPECIFIED] [Concomitant]
     Indication: INSOMNIA
     Route: 065

REACTIONS (3)
  - CONVULSION [None]
  - INSOMNIA [None]
  - PARALYSIS [None]
